FAERS Safety Report 12544359 (Version 5)
Quarter: 2019Q1

REPORT INFORMATION
  Report Type: Spontaneous
  Country: US (occurrence: US)
  Receive Date: 20160711
  Receipt Date: 20190318
  Transmission Date: 20190417
  Serious: No
  Sender: FDA-Public Use
  Company Number: US-PFIZER INC-2016305988

PATIENT
  Age: 64 Year
  Sex: Male

DRUGS (4)
  1. DILANTIN [Suspect]
     Active Substance: PHENYTOIN
     Indication: SEIZURE
     Dosage: 200 MG, 2X/DAY
     Route: 048
     Dates: start: 20161213, end: 20171213
  2. ASPIRIN. [Concomitant]
     Active Substance: ASPIRIN
     Indication: THROMBOCYTOSIS
     Dosage: 162 MG, 1X/DAY [81 MG TABLET DELAYED RELEASE 2 TABLETS. ONCE A DAY]
  3. IBUPROFEN. [Concomitant]
     Active Substance: IBUPROFEN
     Dosage: 200 MG, AS NEEDED(1 TABLET EVERY 6 HRS AS NEEDED)
  4. TAMSULOSIN HCL [Concomitant]
     Active Substance: TAMSULOSIN HYDROCHLORIDE
     Dosage: 0.4 MG, 1X/DAY

REACTIONS (1)
  - Stress [Unknown]
